FAERS Safety Report 7530194-0 (Version None)
Quarter: 2011Q2

REPORT INFORMATION
  Report Type: 
  Country: None (occurrence: None)
  Receive Date: 20110606
  Receipt Date: 20110606
  Transmission Date: 20111010
  Serious: Yes (Other)
  Sender: FDA-Public Use
  Company Number: None

PATIENT
  Sex: Male
  Weight: 102.0593 kg

DRUGS (1)
  1. MINOCYCLINE HCL [Suspect]
     Indication: ROSACEA
     Dosage: 1 CAPSULE 2 TIMES DAILY ORAL
     Route: 048
     Dates: start: 20100801, end: 20110501

REACTIONS (1)
  - SKIN DISCOLOURATION [None]
